FAERS Safety Report 8006673-9 (Version None)
Quarter: 2011Q4

REPORT INFORMATION
  Report Type: 
  Country: None (occurrence: None)
  Receive Date: 20111227
  Receipt Date: 20111215
  Transmission Date: 20120403
  Serious: Yes (Hospitalization, Disabling, Other)
  Sender: FDA-Public Use
  Company Number: GB-TEVA-313715ISR

PATIENT
  Age: 46 Year
  Sex: Male

DRUGS (4)
  1. CLOZARIL [Suspect]
     Indication: SCHIZOPHRENIA
     Dosage: 200 MG, DAILY
     Route: 048
  2. CLOZARIL [Suspect]
     Dosage: 250 MG, DAILY
  3. SERTRALINE HYDROCHLORIDE [Suspect]
     Dosage: 50 MG, DAILY
     Route: 048
  4. SERTRALINE HYDROCHLORIDE [Suspect]
     Dosage: 100 MG, DAILY

REACTIONS (1)
  - LOWER LIMB FRACTURE [None]
